FAERS Safety Report 23484349 (Version 2)
Quarter: 2024Q2

REPORT INFORMATION
  Report Type: Report from Study
  Country: BR (occurrence: BR)
  Receive Date: 20240206
  Receipt Date: 20240410
  Transmission Date: 20240716
  Serious: Yes (Other)
  Sender: FDA-Public Use
  Company Number: BR-ABBOTT-2024A-1376755

PATIENT
  Age: 39 Year
  Sex: Female

DRUGS (2)
  1. DEPAKOTE ER [Suspect]
     Active Substance: DIVALPROEX SODIUM
     Indication: Seizure
     Dosage: CURRENTLY TAKING 2 TABLETS AT NIGHT, ONE OF 250MG AND OTHER OF 500MG, TOTALING 750MG
     Route: 048
  2. DEPAKOTE ER [Suspect]
     Active Substance: DIVALPROEX SODIUM
     Indication: Seizure
     Dosage: CURRENTLY TAKING 2 TABLETS AT NIGHT, ONE OF 250MG AND OTHER OF 500MG, TOTALING 750MG
     Route: 048

REACTIONS (5)
  - Skin lesion removal [Unknown]
  - Liver function test abnormal [Unknown]
  - Hepatic cyst [Unknown]
  - Product complaint [Recovering/Resolving]
  - Feeling abnormal [Unknown]

NARRATIVE: CASE EVENT DATE: 20240125
